FAERS Safety Report 7411620-4 (Version None)
Quarter: 2011Q2

REPORT INFORMATION
  Report Type: 
  Country: None (occurrence: None)
  Receive Date: 20110413
  Receipt Date: 20100930
  Transmission Date: 20111010
  Serious: No
  Sender: FDA-Public Use
  Company Number: US-BRISTOL-MYERS SQUIBB COMPANY-15316169

PATIENT

DRUGS (4)
  1. RADIATION THERAPY [Suspect]
     Indication: ADENOCARCINOMA
  2. ERBITUX [Suspect]
     Indication: HEAD AND NECK CANCER
  3. RADIATION THERAPY [Suspect]
     Indication: HEAD AND NECK CANCER
  4. ERBITUX [Suspect]
     Indication: ADENOCARCINOMA

REACTIONS (1)
  - DYSPHAGIA [None]
